FAERS Safety Report 19704526 (Version 1)
Quarter: 2021Q3

REPORT INFORMATION
  Report Type: Spontaneous
  Country: US (occurrence: US)
  Receive Date: 20210816
  Receipt Date: 20210816
  Transmission Date: 20211014
  Serious: Yes (Hospitalization)
  Sender: FDA-Public Use
  Company Number: None

PATIENT
  Age: 85 Year
  Sex: Male
  Weight: 59.27 kg

DRUGS (22)
  1. LEVEMIR [Concomitant]
     Active Substance: INSULIN DETEMIR
  2. LUPRON [Concomitant]
     Active Substance: LEUPROLIDE ACETATE
  3. SIMVASTATIN. [Concomitant]
     Active Substance: SIMVASTATIN
  4. VITAMIN D3 [Concomitant]
     Active Substance: CHOLECALCIFEROL
  5. FIBERCON [Concomitant]
     Active Substance: CALCIUM POLYCARBOPHIL
  6. MELATONIN [Concomitant]
     Active Substance: MELATONIN
  7. COLACE [Concomitant]
     Active Substance: DOCUSATE SODIUM
  8. ELIQUIS [Concomitant]
     Active Substance: APIXABAN
  9. MORPHINE SULFATE. [Concomitant]
     Active Substance: MORPHINE SULFATE
  10. ABIRATERONE. [Suspect]
     Active Substance: ABIRATERONE ACETATE
     Indication: PROSTATE CANCER
     Route: 048
     Dates: start: 20210412, end: 20210814
  11. SENNA LAXATIVE [Concomitant]
     Active Substance: SENNOSIDES
  12. CENTRUM SILVER [Concomitant]
     Active Substance: MINERALS\VITAMINS
  13. FISH OIL [Concomitant]
     Active Substance: FISH OIL
  14. BICALUTAMIDE. [Concomitant]
     Active Substance: BICALUTAMIDE
  15. DILTIAZEM. [Concomitant]
     Active Substance: DILTIAZEM
  16. PREDNISONE. [Suspect]
     Active Substance: PREDNISONE
     Indication: PROSTATE CANCER
     Route: 048
     Dates: start: 20210412, end: 20210814
  17. BUMEX [Concomitant]
     Active Substance: BUMETANIDE
  18. EZETIMIBE. [Concomitant]
     Active Substance: EZETIMIBE
  19. LEVOTHYROXINE. [Concomitant]
     Active Substance: LEVOTHYROXINE
  20. TAMSULOSIN [Concomitant]
     Active Substance: TAMSULOSIN
  21. CALCIUM [Concomitant]
     Active Substance: CALCIUM
  22. K?TAB [Concomitant]
     Active Substance: POTASSIUM CHLORIDE

REACTIONS (1)
  - Hospice care [None]

NARRATIVE: CASE EVENT DATE: 20210814
